FAERS Safety Report 13654927 (Version 2)
Quarter: 2017Q3

REPORT INFORMATION
  Report Type: Spontaneous
  Country: JP (occurrence: JP)
  Receive Date: 20170615
  Receipt Date: 20170929
  Transmission Date: 20171127
  Serious: No
  Sender: FDA-Public Use
  Company Number: JP-ACTELION-A-CH2017-155173

PATIENT
  Age: 66 Year
  Sex: Male

DRUGS (3)
  1. OXYGEN. [Concomitant]
     Active Substance: OXYGEN
  2. OPSUMIT [Suspect]
     Active Substance: MACITENTAN
     Indication: PULMONARY ARTERIAL HYPERTENSION
     Dosage: 5 MG, QD
     Route: 048
     Dates: start: 20170522, end: 20170526
  3. RIOCIGUAT [Concomitant]
     Active Substance: RIOCIGUAT

REACTIONS (3)
  - Oxygen saturation decreased [Recovering/Resolving]
  - Walking distance test abnormal [Recovering/Resolving]
  - Ventilation perfusion mismatch [Recovering/Resolving]

NARRATIVE: CASE EVENT DATE: 20170526
